FAERS Safety Report 14140762 (Version 14)
Quarter: 2019Q2

REPORT INFORMATION
  Report Type: Spontaneous
  Country: US (occurrence: US)
  Receive Date: 20171030
  Receipt Date: 20190517
  Transmission Date: 20190711
  Serious: Yes (Hospitalization, Other)
  Sender: FDA-Public Use
  Company Number: US-PFIZER INC-2017465566

PATIENT
  Age: 51 Year
  Sex: Male
  Weight: 71 kg

DRUGS (11)
  1. PRILOSEC [Concomitant]
     Active Substance: OMEPRAZOLE MAGNESIUM
     Dosage: UNK
     Dates: start: 2005
  2. LOMOTIL [Concomitant]
     Active Substance: ATROPINE SULFATE\DIPHENOXYLATE HYDROCHLORIDE
     Dosage: UNK
     Dates: start: 2018
  3. LOVENOX [Concomitant]
     Active Substance: ENOXAPARIN SODIUM
     Indication: PULMONARY EMBOLISM
     Dosage: UNK
     Dates: start: 201707
  4. VITAMIN E [Concomitant]
     Active Substance: .ALPHA.-TOCOPHEROL
     Dosage: UNK
  5. SUTENT [Suspect]
     Active Substance: SUNITINIB MALATE
     Indication: METASTATIC RENAL CELL CARCINOMA
     Dosage: 50 MG, CYCLIC (2 WEEKS ON/1 WEEK OFF)
     Dates: start: 20170914
  6. SUTENT [Suspect]
     Active Substance: SUNITINIB MALATE
     Dosage: 50 MG, 1X/DAY
     Dates: start: 201711
  7. LEVOTHYROXINE. [Concomitant]
     Active Substance: LEVOTHYROXINE
     Dosage: UNK
     Dates: start: 2018
  8. CRESTOR [Concomitant]
     Active Substance: ROSUVASTATIN CALCIUM
     Dosage: UNK
     Dates: start: 2005
  9. AMARYL [Concomitant]
     Active Substance: GLIMEPIRIDE
     Dosage: UNK
     Dates: start: 2013
  10. METOPROLOL. [Concomitant]
     Active Substance: METOPROLOL
     Dosage: UNK
     Dates: start: 2015
  11. ELIQUIS [Concomitant]
     Active Substance: APIXABAN
     Dosage: UNK
     Dates: start: 20180322

REACTIONS (32)
  - Diarrhoea [Not Recovered/Not Resolved]
  - Cough [Not Recovered/Not Resolved]
  - Condition aggravated [Not Recovered/Not Resolved]
  - Pancreatitis [Unknown]
  - Blood glucose decreased [Not Recovered/Not Resolved]
  - Fatigue [Not Recovered/Not Resolved]
  - Haemoptysis [Not Recovered/Not Resolved]
  - Arthritis [Recovered/Resolved]
  - Rash macular [Recovered/Resolved]
  - Lip blister [Recovered/Resolved]
  - Stomatitis [Recovered/Resolved]
  - Aphonia [Recovered/Resolved]
  - Arthralgia [Recovered/Resolved]
  - Ageusia [Not Recovered/Not Resolved]
  - Nausea [Recovered/Resolved]
  - Nasal dryness [Recovered/Resolved]
  - Hair growth abnormal [Not Recovered/Not Resolved]
  - Muscle spasms [Recovered/Resolved]
  - Nasopharyngitis [Recovered/Resolved]
  - Nasal disorder [Recovered/Resolved]
  - Glossodynia [Recovered/Resolved]
  - Constipation [Recovered/Resolved]
  - White blood cell count decreased [Recovered/Resolved]
  - Blood pressure increased [Not Recovered/Not Resolved]
  - Asthenia [Recovered/Resolved]
  - Back pain [Not Recovered/Not Resolved]
  - Oropharyngeal pain [Recovered/Resolved]
  - Dry skin [Recovered/Resolved]
  - Skin lesion [Recovered/Resolved]
  - Feeling cold [Not Recovered/Not Resolved]
  - Chest discomfort [Not Recovered/Not Resolved]
  - Upper respiratory tract infection [Recovered/Resolved]

NARRATIVE: CASE EVENT DATE: 2017
